FAERS Safety Report 6423495-0 (Version None)
Quarter: 2009Q4

REPORT INFORMATION
  Report Type: 
  Country: None (occurrence: None)
  Receive Date: 20091102
  Receipt Date: 20091020
  Transmission Date: 20100525
  Serious: Yes (Life-Threatening, Hospitalization)
  Sender: FDA-Public Use
  Company Number: EC-JNJFOC-20091007504

PATIENT
  Age: 40 Year
  Sex: Female

DRUGS (3)
  1. ZALDIAR [Suspect]
     Indication: PROCEDURAL PAIN
     Route: 048
     Dates: start: 20090906, end: 20090909
  2. ANTICOAGULANT THERAPY [Concomitant]
  3. CEFADROXIL [Concomitant]
     Route: 048

REACTIONS (2)
  - ANAPHYLACTIC SHOCK [None]
  - RESPIRATORY DEPRESSION [None]
